FAERS Safety Report 18763701 (Version 1)
Quarter: 2021Q1

REPORT INFORMATION
  Report Type: Spontaneous
  Country: US (occurrence: US)
  Receive Date: 20210120
  Receipt Date: 20210120
  Transmission Date: 20210419
  Serious: No
  Sender: FDA-Public Use
  Company Number: US-LANNETT COMPANY, INC.-US-2020LAN000150

PATIENT
  Age: 41 Year
  Sex: Male

DRUGS (2)
  1. BACLOFEN (20MG) [Suspect]
     Active Substance: BACLOFEN
     Indication: BACK INJURY
     Dosage: 20 MG, TID
     Route: 048
  2. BACLOFEN (20MG) [Suspect]
     Active Substance: BACLOFEN
     Indication: MUSCLE SPASMS
     Dosage: 20 MG, TID
     Route: 048
     Dates: start: 202003

REACTIONS (5)
  - Chills [Not Recovered/Not Resolved]
  - Neuralgia [Not Recovered/Not Resolved]
  - Product substitution issue [Unknown]
  - Product taste abnormal [Unknown]
  - Skin burning sensation [Not Recovered/Not Resolved]

NARRATIVE: CASE EVENT DATE: 202003
